FAERS Safety Report 8479298-9 (Version None)
Quarter: 2012Q2

REPORT INFORMATION
  Report Type: 
  Country: None (occurrence: None)
  Receive Date: 20120629
  Receipt Date: 20120626
  Transmission Date: 20120825
  Serious: Yes (Hospitalization)
  Sender: FDA-Public Use
  Company Number: DE-GLAXOSMITHKLINE-B0801665A

PATIENT
  Sex: Female
  Weight: 64 kg

DRUGS (12)
  1. DOXORUBICIN HCL [Suspect]
     Indication: BREAST CANCER
     Dosage: 34MG WEEKLY
     Route: 042
     Dates: start: 20120419
  2. MILK THISTLE [Concomitant]
     Dates: start: 20120430
  3. LOPERAMIDE [Concomitant]
     Dosage: 2TAB PER DAY
     Dates: start: 20120422, end: 20120502
  4. NOVALGIN [Concomitant]
     Dates: start: 19930101
  5. MAALOXAN [Concomitant]
     Dosage: 2TAB PER DAY
     Dates: start: 20120427
  6. TRASTUZUMAB [Suspect]
     Indication: BREAST CANCER
     Dosage: 384MG EVERY 3 WEEKS
     Route: 042
     Dates: start: 20120419
  7. PACLITAXEL [Suspect]
     Indication: BREAST CANCER
     Dosage: 137MG WEEKLY
     Route: 042
     Dates: start: 20120419
  8. JUTABIS [Concomitant]
     Dosage: 5MG PER DAY
     Dates: start: 20060101
  9. UNSPECIFIED MEDICATION [Concomitant]
     Dosage: 20MG PER DAY
     Dates: start: 19820101
  10. LAPATINIB [Suspect]
     Indication: BREAST CANCER
     Dosage: 750MG PER DAY
     Route: 048
     Dates: start: 20120419
  11. SELENIUM [Concomitant]
     Dates: start: 20120430
  12. UNSPECIFIED MEDICATION [Concomitant]
     Dates: start: 20120430

REACTIONS (1)
  - GENERAL PHYSICAL HEALTH DETERIORATION [None]
